FAERS Safety Report 8369993-4 (Version None)
Quarter: 2012Q2

REPORT INFORMATION
  Report Type: 
  Country: None (occurrence: None)
  Receive Date: 20120518
  Receipt Date: 20120419
  Transmission Date: 20120825
  Serious: No
  Sender: FDA-Public Use
  Company Number: US-ASTRAZENECA-2012SE25657

PATIENT
  Sex: Female

DRUGS (3)
  1. DOPAMINE HCL [Concomitant]
     Indication: NERVOUS SYSTEM DISORDER
  2. SEROQUEL [Suspect]
     Route: 048
  3. SEROQUEL [Suspect]
     Route: 048

REACTIONS (2)
  - INTENTIONAL DRUG MISUSE [None]
  - SPEECH DISORDER [None]
